FAERS Safety Report 18241396 (Version 1)
Quarter: 2020Q3

REPORT INFORMATION
  Report Type: Spontaneous
  Country: GB (occurrence: GB)
  Receive Date: 20200908
  Receipt Date: 20200908
  Transmission Date: 20201103
  Serious: Yes (Other)
  Sender: FDA-Public Use
  Company Number: PHHY2018GB011705

PATIENT
  Age: 47 Year
  Sex: Female

DRUGS (17)
  1. CISPLATIN. [Suspect]
     Active Substance: CISPLATIN
     Indication: GESTATIONAL TROPHOBLASTIC TUMOUR
     Dosage: 60 MG/M2, D 14
     Route: 065
  2. PACLITAXEL. [Suspect]
     Active Substance: PACLITAXEL
     Indication: GESTATIONAL TROPHOBLASTIC TUMOUR
     Dosage: 135 MG/M2, (D 1 AND 14)
     Route: 065
  3. DACTINOMYCIN [Suspect]
     Active Substance: DACTINOMYCIN
     Indication: GESTATIONAL TROPHOBLASTIC TUMOUR
     Dosage: EP/EMA REGIMEN CONSISTING OF DACTINOMYCIN 0.5MG ON DAY 1 AND 2
     Route: 065
  4. METHOTREXATE. [Suspect]
     Active Substance: METHOTREXATE
     Indication: GESTATIONAL TROPHOBLASTIC TUMOUR
     Dosage: 12.5 MG, D 1
     Route: 037
  5. METHOTREXATE. [Suspect]
     Active Substance: METHOTREXATE
     Dosage: 1000 MG/M2 ON DAY 1 WITH EP/EMA REGIMEN
     Route: 037
  6. CISPLATIN. [Suspect]
     Active Substance: CISPLATIN
     Dosage: TE/TP REGIMEN CONSISTING OF CISPLATIN 60 MG/M2 ON DAY 14.
     Route: 065
  7. METHOTREXATE. [Suspect]
     Active Substance: METHOTREXATE
     Dosage: THEN AT 12.5MG ON DAY 1 WITH TE/TP REGIMEN AND ESCALATED EP REGIMEN
     Route: 037
  8. CISPLATIN. [Suspect]
     Active Substance: CISPLATIN
     Dosage: EP REGIMEN CONSISTING OF CISPLATIN 20 MG/M2 ON DAY 8
     Route: 065
  9. CISPLATIN. [Suspect]
     Active Substance: CISPLATIN
     Dosage: ESCALATED EP REGIMEN CONSISTING OF CISPLATIN 60 MG/M2 ON DAY 1
     Route: 065
  10. PACLITAXEL. [Suspect]
     Active Substance: PACLITAXEL
     Indication: CHORIOCARCINOMA
  11. PEMBROLIZUMAB. [Suspect]
     Active Substance: PEMBROLIZUMAB
     Indication: GESTATIONAL TROPHOBLASTIC TUMOUR
     Dosage: UNK
     Route: 065
  12. CISPLATIN. [Suspect]
     Active Substance: CISPLATIN
     Dosage: EP/EMA REGIMEN CONSISTING OF CISPLATIN 75 MG/M2 ON DAY 8
     Route: 065
  13. ETOPOSIDE. [Suspect]
     Active Substance: ETOPOSIDE
     Indication: GESTATIONAL TROPHOBLASTIC TUMOUR
     Dosage: 150 MG/M2, D1
     Route: 065
  14. ETOPOSIDE. [Suspect]
     Active Substance: ETOPOSIDE
     Dosage: EP/EMA REGIMEN CONSISTING OF ETOPOSIDE 150MG/M2 ON DAY 8 AND 100 MG/M2 ON DAY 1 AND 2
     Route: 065
  15. ETOPOSIDE. [Suspect]
     Active Substance: ETOPOSIDE
     Dosage: ESCALATED EP REGIMEN CONSISTING OF ETOPOSIDE 500 MG/M2
     Route: 065
  16. ETOPOSIDE. [Suspect]
     Active Substance: ETOPOSIDE
     Indication: CHORIOCARCINOMA
     Dosage: EP REGIMEN CONSISTING OF ETOPOSIDE 100MG/M2 ON DAY1 AND 2
     Route: 065
  17. ETOPOSIDE. [Suspect]
     Active Substance: ETOPOSIDE
     Dosage: TE/TP REGIMEN CONSISTING OF ETOPOSIDE 150 MG/M2 ON DAY 1
     Route: 065

REACTIONS (9)
  - Neuropathy peripheral [Unknown]
  - Nephropathy [Unknown]
  - Synovitis [Recovered/Resolved]
  - Malignant neoplasm progression [Unknown]
  - Rash [Recovered/Resolved]
  - Metastases to central nervous system [Unknown]
  - Drug resistance [Unknown]
  - Product use in unapproved indication [Unknown]
  - Intentional product use issue [Unknown]
